FAERS Safety Report 12870506 (Version 1)
Quarter: 2016Q4

REPORT INFORMATION
  Report Type: Spontaneous
  Country: CH (occurrence: CH)
  Receive Date: 20161021
  Receipt Date: 20161021
  Transmission Date: 20170207
  Serious: Yes (Life-Threatening, Hospitalization)
  Sender: FDA-Public Use
  Company Number: CH-PFIZER INC-2016479674

PATIENT
  Age: 67 Year
  Sex: Female
  Weight: 66 kg

DRUGS (18)
  1. INEGY [Concomitant]
     Active Substance: EZETIMIBE\SIMVASTATIN
     Indication: PROPHYLAXIS
     Dosage: 1 DF (10/20), 1X/DAY
     Route: 048
  2. ONDANSETRON TEVA /00955301/ [Concomitant]
     Indication: VOMITING
     Dosage: 4 MG, UNK
     Route: 040
     Dates: start: 20161001
  3. OXYCONTIN [Suspect]
     Active Substance: OXYCODONE HYDROCHLORIDE
     Indication: POSTOPERATIVE ANALGESIA
     Dosage: 10 MG, 1X/12 H
     Route: 048
     Dates: start: 20160928, end: 201610
  4. DAFALGAN [Suspect]
     Active Substance: ACETAMINOPHEN
     Indication: POSTOPERATIVE ANALGESIA
     Dosage: 1 G, 4X/DAY
     Route: 048
     Dates: start: 20160927
  5. METFORMIN [Concomitant]
     Active Substance: METFORMIN HYDROCHLORIDE
     Indication: TYPE 2 DIABETES MELLITUS
     Dosage: 1000 MG, 1.5X/D
     Route: 048
  6. TEMESTA EXPIDET [Suspect]
     Active Substance: LORAZEPAM
     Indication: ANXIETY
     Dosage: 1 MG, SINGLE
     Route: 060
     Dates: start: 20161001
  7. ATROVENT [Concomitant]
     Active Substance: IPRATROPIUM BROMIDE
     Dosage: 250 UG, 4X/DAY
     Route: 055
  8. METAMIZOL /06276704/ [Concomitant]
     Active Substance: METAMIZOLE SODIUM
     Indication: POSTOPERATIVE ANALGESIA
     Dosage: 500 MG, UNK
     Route: 048
  9. MORPHIN [Suspect]
     Active Substance: MORPHINE
     Indication: POSTOPERATIVE ANALGESIA
     Dosage: UNK, SINGLE
     Route: 040
  10. ZINACEF [Concomitant]
     Active Substance: CEFUROXIME SODIUM
     Indication: ANTIBIOTIC PROPHYLAXIS
     Dosage: 1.5 G, 3X/DAY
     Route: 042
  11. LOSARTAN SANDOZ [Concomitant]
     Active Substance: LOSARTAN
     Indication: HYPERTENSION
     Dosage: 100 MG, 1X/DAY
     Route: 048
  12. TRANSIPEG /01618701/ [Concomitant]
     Active Substance: POLYETHYLENE GLYCOL 3350\POTASSIUM CHLORIDE\SODIUM BICARBONATE\SODIUM CHLORIDE\SODIUM SULFATE ANHYDROUS
     Indication: CONSTIPATION
     Dosage: 1 DF, 1X/DAY
     Route: 048
  13. JARDIANCE [Suspect]
     Active Substance: EMPAGLIFLOZIN
     Indication: TYPE 2 DIABETES MELLITUS
     Dosage: 10 MG, 1X/DAY
     Route: 048
     Dates: start: 2015, end: 20161001
  14. PRIMPERAN [Concomitant]
     Active Substance: METOCLOPRAMIDE HYDROCHLORIDE
     Indication: NAUSEA
     Route: 040
     Dates: start: 20160928, end: 20160929
  15. GLIMEPIRID SANDOZ [Concomitant]
     Active Substance: GLIMEPIRIDE
     Indication: TYPE 2 DIABETES MELLITUS
     Dosage: 3 MG, 2X/DAY
     Route: 048
  16. NEXIUM [Concomitant]
     Active Substance: ESOMEPRAZOLE MAGNESIUM
     Indication: PROPHYLAXIS
     Dosage: 40 MG, 1X/DAY
     Route: 048
  17. FRAXIPARINE [Concomitant]
     Active Substance: NADROPARIN CALCIUM
     Indication: THROMBOSIS PROPHYLAXIS
     Dosage: 0.3 ML, 1X/DAY
     Route: 058
  18. VENTOLIN [Concomitant]
     Active Substance: ALBUTEROL SULFATE
     Dosage: 1.25 MG, 4X/DAY
     Route: 055

REACTIONS (5)
  - Vomiting [Recovered/Resolved]
  - Tachypnoea [Recovered/Resolved]
  - Diabetic ketoacidosis [Recovering/Resolving]
  - Medication error [Recovered/Resolved]
  - Disturbance in attention [Recovered/Resolved]

NARRATIVE: CASE EVENT DATE: 20160930
